FAERS Safety Report 5374417-5 (Version None)
Quarter: 2007Q2

REPORT INFORMATION
  Report Type: 
  Country: None (occurrence: None)
  Receive Date: 20070629
  Receipt Date: 20070620
  Transmission Date: 20071010
  Serious: Yes (Other)
  Sender: FDA-Public Use
  Company Number: US-AVENTIS-200712612US

PATIENT
  Sex: Female
  Weight: 52.27 kg

DRUGS (9)
  1. ARAVA [Suspect]
     Indication: RHEUMATOID ARTHRITIS
     Route: 048
     Dates: start: 20060510
  2. CYTOXAN [Concomitant]
  3. PREDNISONE TAB [Concomitant]
  4. METFORMIN HCL [Concomitant]
  5. SIMVASTATIN [Concomitant]
  6. NIFEDIPINE [Concomitant]
  7. DIOVAN HCT [Concomitant]
     Dosage: DOSE: 160/25
  8. FOSAMAX [Concomitant]
  9. VIT D [Concomitant]
     Dosage: DOSE: 50,000

REACTIONS (20)
  - ANAEMIA [None]
  - ANOREXIA [None]
  - BLOOD CREATININE INCREASED [None]
  - BLOOD UREA INCREASED [None]
  - DIARRHOEA [None]
  - DIZZINESS POSTURAL [None]
  - DYSPNOEA [None]
  - EOSINOPHILIA [None]
  - GAMMA-GLUTAMYLTRANSFERASE [None]
  - GLOMERULONEPHRITIS RAPIDLY PROGRESSIVE [None]
  - KIDNEY FIBROSIS [None]
  - LETHARGY [None]
  - MALAISE [None]
  - NEUROPATHY PERIPHERAL [None]
  - OLIGURIA [None]
  - PROTEINURIA [None]
  - RENAL TUBULAR ATROPHY [None]
  - SYNCOPE [None]
  - TUBULOINTERSTITIAL NEPHRITIS [None]
  - WEIGHT DECREASED [None]
